FAERS Safety Report 10256067 (Version 1)
Quarter: 2014Q2

REPORT INFORMATION
  Report Type: Spontaneous
  Country: US (occurrence: US)
  Receive Date: 20140624
  Receipt Date: 20140624
  Transmission Date: 20141212
  Serious: No
  Sender: FDA-Public Use
  Company Number: US-ZOGENIX, INC.-2012ZX000092

PATIENT
  Sex: Female
  Weight: 62.2 kg

DRUGS (5)
  1. SUMAVEL DOSEPRO [Suspect]
     Indication: MIGRAINE
     Dates: start: 201112
  2. GABAPENTIN [Concomitant]
     Indication: MIGRAINE
     Route: 048
  3. LITHIUM [Concomitant]
     Indication: MIGRAINE
     Route: 048
  4. XANAX [Concomitant]
     Indication: ANXIETY
     Route: 048
  5. XANAX [Concomitant]
     Indication: PANIC DISORDER

REACTIONS (3)
  - Drug ineffective [Recovered/Resolved]
  - Device malfunction [Recovered/Resolved]
  - Accidental exposure to product [Recovered/Resolved]
